FAERS Safety Report 19642494 (Version 1)
Quarter: 2021Q3

REPORT INFORMATION
  Report Type: Spontaneous
  Country: DE (occurrence: DE)
  Receive Date: 20210731
  Receipt Date: 20210731
  Transmission Date: 20211014
  Serious: Yes (Hospitalization, Other)
  Sender: FDA-Public Use
  Company Number: DE-ACCORD-233771

PATIENT
  Age: 77 Year
  Sex: Female
  Weight: 69 kg

DRUGS (6)
  1. SIMVASTATIN. [Concomitant]
     Active Substance: SIMVASTATIN
     Indication: HYPERLIPIDAEMIA
     Dosage: 1?0?0, AT LEAST SINCE 2016
     Route: 048
     Dates: start: 2016
  2. ACETYLSALICYLIC ACID [Concomitant]
     Active Substance: ASPIRIN
     Dosage: 1?0?0, AT LEAST SINCE 2016
     Route: 048
     Dates: start: 2016
  3. METOPROLOL. [Concomitant]
     Active Substance: METOPROLOL
     Indication: ATRIAL FIBRILLATION
     Dosage: 0.5?0?0.5, AT LEAST SINCE 2016
     Route: 048
     Dates: start: 2016
  4. OLMESARTAN/OLMESARTAN MEDOXOMIL [Suspect]
     Active Substance: OLMESARTAN MEDOXOMIL
     Indication: HYPERTENSION
     Dosage: STRENGTH:20 MG,1?0?0, AT LEAST SINCE 2016
     Route: 048
     Dates: start: 2016
  5. AMLODIPINE [Concomitant]
     Active Substance: AMLODIPINE BESYLATE
     Indication: HYPERTENSION
     Dosage: 5MG, 1?0?0, AT LEAST SINCE 2016
     Route: 048
     Dates: start: 2016
  6. FLECAINIDE [Concomitant]
     Active Substance: FLECAINIDE
     Indication: ATRIAL FIBRILLATION
     Dosage: STRENGTH:50MG,1?0?1, AT LEAST SINCE 2016
     Route: 048
     Dates: start: 2016

REACTIONS (4)
  - Diarrhoea [Recovering/Resolving]
  - Gastrointestinal disorder [Recovering/Resolving]
  - Colitis microscopic [Recovering/Resolving]
  - Acute kidney injury [Recovering/Resolving]

NARRATIVE: CASE EVENT DATE: 20210516
